FAERS Safety Report 15291235 (Version 1)
Quarter: 2018Q3

REPORT INFORMATION
  Report Type: Report from Study
  Country: US (occurrence: US)
  Receive Date: 20180817
  Receipt Date: 20180817
  Transmission Date: 20181010
  Serious: Yes (Hospitalization, Other)
  Sender: FDA-Public Use
  Company Number: US-TESARO, INC-US-2018TSO03964

PATIENT
  Age: 87 Year
  Sex: Female

DRUGS (2)
  1. ZEJULA [Suspect]
     Active Substance: NIRAPARIB
     Indication: OVARIAN CANCER
     Dosage: 300 MG, UNK
     Route: 048
     Dates: start: 20180202
  2. ZEJULA [Suspect]
     Active Substance: NIRAPARIB
     Dosage: 100 MG DAILY ALTERNATING WITH 200 MG DAILY
     Route: 048
     Dates: start: 20180615, end: 20180712

REACTIONS (6)
  - Asthenia [Not Recovered/Not Resolved]
  - Haemoglobin decreased [Not Recovered/Not Resolved]
  - Pneumonia [Not Recovered/Not Resolved]
  - Inappropriate schedule of drug administration [Unknown]
  - Dysgeusia [Not Recovered/Not Resolved]
  - Oxygen saturation decreased [Not Recovered/Not Resolved]

NARRATIVE: CASE EVENT DATE: 20180615
